FAERS Safety Report 9702032 (Version 1)
Quarter: 2013Q4

REPORT INFORMATION
  Report Type: Spontaneous
  Country: US (occurrence: US)
  Receive Date: 20131121
  Receipt Date: 20131121
  Transmission Date: 20140711
  Serious: Yes (Other)
  Sender: FDA-Public Use
  Company Number: US-JNJCP-30000187314

PATIENT
  Sex: Female
  Weight: 66 kg

DRUGS (5)
  1. AVEENO BABY CONTINUOUS PROTECTION SUNSCREEN BROAD SPECTRUM SPF55 [Suspect]
     Indication: PROPHYLAXIS
     Dosage: PEA-SIZED AMOUNT, ONCE PER DAY
     Route: 061
     Dates: end: 20131104
  2. B12 COMPLEX [Concomitant]
     Indication: ROUTINE HEALTH MAINTENANCE
     Dosage: ONCE PER DAY, SINCE TWO YEARS
  3. BIOTIN [Concomitant]
     Indication: ROUTINE HEALTH MAINTENANCE
     Dosage: ONCE PER DAY, SINCE FIVE YEARS
  4. LUTEIN [Concomitant]
     Dosage: ONCE PER DAY, SINCE FIVE YEARS
  5. AVEENO DAILY MOISTURIZING LOTION [Suspect]
     Indication: PROPHYLAXIS
     Dosage: PEA-SIZED AMOUNT, ONCE PER DAY
     Route: 061

REACTIONS (4)
  - Application site papules [Recovering/Resolving]
  - Expired drug administered [Unknown]
  - Product lot number issue [Unknown]
  - Solar lentigo [Recovering/Resolving]
